FAERS Safety Report 4341174-0 (Version None)
Quarter: 2004Q2

REPORT INFORMATION
  Report Type: 
  Country: None (occurrence: None)
  Receive Date: 20040413
  Receipt Date: 20040331
  Transmission Date: 20050107
  Serious: Yes (Disabling)
  Sender: FDA-Public Use
  Company Number: 2004AP02026

PATIENT
  Age: 80 Year
  Sex: Male

DRUGS (5)
  1. OMEPRAZOLE [Suspect]
     Dates: start: 20040324, end: 20040330
  2. ACETAMINOPHEN [Suspect]
     Dates: start: 20040324, end: 20040330
  3. CEFZON [Suspect]
     Dates: start: 20040324, end: 20040330
  4. PA [Suspect]
     Dates: start: 20040324, end: 20040330
  5. LAVIN [Suspect]
     Dates: start: 20040324, end: 20040330

REACTIONS (5)
  - BLOOD POTASSIUM INCREASED [None]
  - DERMATITIS EXFOLIATIVE [None]
  - DIALYSIS [None]
  - DISEASE RECURRENCE [None]
  - RENAL FAILURE ACUTE [None]
